FAERS Safety Report 6830536-5 (Version None)
Quarter: 2010Q3

REPORT INFORMATION
  Report Type: 
  Country: None (occurrence: None)
  Receive Date: 20100712
  Receipt Date: 20100628
  Transmission Date: 20110219
  Serious: Yes (Death, Hospitalization)
  Sender: FDA-Public Use
  Company Number: GB-RANBAXY-2010RR-35515

PATIENT
  Age: 70 Year
  Sex: Female

DRUGS (26)
  1. AMITRIPTYLINE HYDROCHLORIDE [Suspect]
     Indication: DEPRESSION
  2. AMIKACIN [Suspect]
     Indication: BACTERAEMIA
  3. AMPICILLIN SODIUM [Suspect]
     Indication: BACTERAEMIA
  4. ASPIRIN [Suspect]
     Indication: HYPERTENSION
  5. ASPIRIN [Suspect]
     Indication: MYOCARDIAL ISCHAEMIA
  6. CEFTRIAXONE [Suspect]
     Indication: PNEUMONIA
  7. CIPROFLOXACIN [Suspect]
     Indication: BACTERAEMIA
  8. CITALOPRAM HYDROBROMIDE [Suspect]
     Indication: DEPRESSION
  9. ENALAPRIL MALEATE [Suspect]
     Indication: HYPERTENSION
  10. FUROSEMIDE [Suspect]
     Indication: HYPERTENSION
  11. GLYBURIDE [Suspect]
     Indication: TYPE 2 DIABETES MELLITUS
     Route: 048
  12. HYDROCORTISONE [Suspect]
     Indication: TOXIC EPIDERMAL NECROLYSIS
     Dosage: 500 MG, UNK
     Route: 042
  13. IMMUNE GLOBULIN NOS [Suspect]
     Indication: PRODUCT USED FOR UNKNOWN INDICATION
     Dosage: 40 G, UNK
     Route: 042
  14. LEVOFLOXACIN [Suspect]
     Indication: BACTERAEMIA
  15. METFORMIN HCL [Suspect]
     Indication: TYPE 2 DIABETES MELLITUS
     Route: 048
  16. OMEPRAZOLE [Suspect]
     Indication: PRODUCT USED FOR UNKNOWN INDICATION
  17. PIPERACILLIN [Suspect]
     Indication: BACTERAEMIA
  18. SIMVASTATIN [Suspect]
     Indication: HYPERLIPIDAEMIA
  19. TAZOBACTAM [Suspect]
  20. THEOPHYLLINE [Suspect]
     Indication: BRONCHITIS CHRONIC
  21. VANCOMYCIN [Suspect]
     Indication: BACTERAEMIA
  22. VERAPAMIL [Suspect]
     Indication: HYPERTENSION
  23. DEXTROSE [Concomitant]
     Indication: HYPOGLYCAEMIA
     Route: 042
  24. LATANOPROST [Concomitant]
     Indication: PRODUCT USED FOR UNKNOWN INDICATION
  25. MAGNESIUM SULFATE [Concomitant]
     Indication: HYPOMAGNESAEMIA
  26. DORZOLAMIDE [Concomitant]

REACTIONS (5)
  - ACUTE RESPIRATORY DISTRESS SYNDROME [None]
  - BACTERIAL INFECTION [None]
  - HAEMORRHAGE INTRACRANIAL [None]
  - HYPOGLYCAEMIA [None]
  - TOXIC EPIDERMAL NECROLYSIS [None]
